FAERS Safety Report 6712132-3 (Version None)
Quarter: 2010Q2

REPORT INFORMATION
  Report Type: 
  Country: None (occurrence: None)
  Receive Date: 20100505
  Receipt Date: 20100422
  Transmission Date: 20101027
  Serious: Yes (Other)
  Sender: FDA-Public Use
  Company Number: US-ELI_LILLY_AND_COMPANY-US201003008198

PATIENT
  Sex: Female

DRUGS (16)
  1. FORTEO [Suspect]
     Indication: OSTEOPOROSIS
  2. PRASUGREL [Concomitant]
     Dosage: 10 MG, DAILY (1/D)
  3. NEXIUM [Concomitant]
     Dosage: 40 MG, 2/D
  4. LEVEMIR [Concomitant]
     Dosage: 30 U, EACH MORNING
     Route: 058
  5. HUMALOG [Concomitant]
  6. HUMULIN R [Concomitant]
     Dosage: 60 U, EACH MORNING
  7. BYSTOLIC [Concomitant]
     Dosage: 2.5 MG, DAILY (1/D)
  8. ASTELIN [Concomitant]
     Dosage: UNK, DAILY (1/D)
     Route: 045
  9. CHANTIX                            /05703001/ [Concomitant]
     Dosage: 1 MG, 2/D
  10. TRAZODONE HCL [Concomitant]
     Dosage: 75 MG, EACH EVENING
  11. CRESTOR [Concomitant]
     Dosage: 20 MG, EACH EVENING
  12. NOVOLOG [Concomitant]
     Dosage: 60 U, 3/D
  13. NITROGLYCERIN [Concomitant]
     Dosage: 0.4 MG, AS NEEDED
     Route: 060
  14. ASPIRIN [Concomitant]
     Dosage: 162 MG, DAILY (1/D)
  15. PULMICORT [Concomitant]
     Dosage: UNK, AS NEEDED
  16. DUONEB [Concomitant]
     Dosage: UNK, AS NEEDED

REACTIONS (1)
  - ACUTE MYOCARDIAL INFARCTION [None]
